FAERS Safety Report 10722027 (Version 1)
Quarter: 2015Q1

REPORT INFORMATION
  Report Type: Spontaneous
  Country: US (occurrence: US)
  Receive Date: 20150119
  Receipt Date: 20150119
  Transmission Date: 20150721
  Serious: No
  Sender: FDA-Public Use
  Company Number: US-GLAXOSMITHKLINE-US2014GSK047325

PATIENT
  Age: 60 Year
  Sex: Female

DRUGS (2)
  1. UNSPECIFIED MEDICATION [Concomitant]
     Active Substance: UNSPECIFIED INGREDIENT
  2. SORIATANE [Suspect]
     Active Substance: ACITRETIN
     Indication: PSORIASIS
     Dosage: 25 MG, 1D

REACTIONS (5)
  - Gastric disorder [Recovering/Resolving]
  - Malaise [Recovering/Resolving]
  - Gastrooesophageal reflux disease [Recovering/Resolving]
  - Abdominal pain upper [Recovering/Resolving]
  - Drug dose omission [Unknown]

NARRATIVE: CASE EVENT DATE: 201409
